FAERS Safety Report 12841859 (Version 6)
Quarter: 2017Q1

REPORT INFORMATION
  Report Type: Report from Study
  Country: CA (occurrence: CA)
  Receive Date: 20161012
  Receipt Date: 20170227
  Transmission Date: 20170428
  Serious: Yes (Hospitalization, Other)
  Sender: FDA-Public Use
  Company Number: CA-TAKEDA-2016TUS018160

PATIENT
  Age: 82 Year
  Sex: Female

DRUGS (9)
  1. ELTROXIN [Concomitant]
     Active Substance: LEVOTHYROXINE
     Dosage: 0.05 MG, QD
  2. VIT B 12 [Concomitant]
     Dosage: UNK, MONTHLY
     Route: 050
  3. VEDOLIZUMAB [Suspect]
     Active Substance: VEDOLIZUMAB
     Indication: CROHN^S DISEASE
     Dosage: 300 MG, UNK
     Route: 042
     Dates: start: 20160628
  4. ZYLOPRIM [Concomitant]
     Active Substance: ALLOPURINOL
     Dosage: UNK
  5. OLMETEC [Concomitant]
     Active Substance: OLMESARTAN MEDOXOMIL
     Dosage: 20 MG, QD
  6. PREDNISONE. [Concomitant]
     Active Substance: PREDNISONE
     Dosage: 15 MG, UNK
  7. ZYLOPRIM [Concomitant]
     Active Substance: ALLOPURINOL
     Dosage: 100 MG, QD
  8. VEDOLIZUMAB [Suspect]
     Active Substance: VEDOLIZUMAB
     Dosage: 300 MG, Q4WEEKS
     Route: 042
     Dates: start: 20160908
  9. APO AMLODIPINE ATORVASTATIN [Concomitant]
     Dosage: UNK, QD

REACTIONS (5)
  - Inappropriate schedule of drug administration [Unknown]
  - Pneumonia [Unknown]
  - Lower gastrointestinal haemorrhage [Unknown]
  - Haematochezia [Recovered/Resolved]
  - Atypical pneumonia [Unknown]

NARRATIVE: CASE EVENT DATE: 2016
